FAERS Safety Report 23245535 (Version 1)
Quarter: 2023Q4

REPORT INFORMATION
  Report Type: Spontaneous
  Country: US (occurrence: US)
  Receive Date: 20231130
  Receipt Date: 20231130
  Transmission Date: 20240110
  Serious: Yes (Death, Hospitalization, Disabling, Other)
  Sender: FDA-Public Use
  Company Number: US-REGENERON PHARMACEUTICALS, INC.-2023-144627

PATIENT
  Sex: Male

DRUGS (1)
  1. EYLEA [Suspect]
     Active Substance: AFLIBERCEPT
     Indication: Macular degeneration
     Dosage: EVERY 3 TO 4 MONTHS, INTO BOTH EYES, FORMULATION: UNKNOWN
     Dates: start: 2018

REACTIONS (9)
  - Death [Fatal]
  - Blindness [Unknown]
  - Pneumonia [Unknown]
  - Cardiac failure [Unknown]
  - Myocardial infarction [Unknown]
  - Cataract [Unknown]
  - Urinary tract infection [Unknown]
  - Abnormal behaviour [Unknown]
  - Abnormal loss of weight [Unknown]

NARRATIVE: CASE EVENT DATE: 20190101
